FAERS Safety Report 10796329 (Version 1)
Quarter: 2015Q1

REPORT INFORMATION
  Report Type: Spontaneous
  Country: JP (occurrence: JP)
  Receive Date: 20150216
  Receipt Date: 20150216
  Transmission Date: 20150721
  Serious: Yes (Hospitalization)
  Sender: FDA-Public Use
  Company Number: JP-BAYER-2015-022684

PATIENT
  Age: 63 Year
  Sex: Female

DRUGS (1)
  1. STIVARGA [Suspect]
     Active Substance: REGORAFENIB
     Indication: COLORECTAL CANCER
     Dosage: 80 MG, QD
     Route: 048
     Dates: start: 20150108, end: 20150201

REACTIONS (3)
  - Nausea [Recovered/Resolved]
  - Malaise [Recovered/Resolved]
  - Decreased appetite [Recovered/Resolved]

NARRATIVE: CASE EVENT DATE: 20150201
